FAERS Safety Report 7866145-9 (Version None)
Quarter: 2011Q4

REPORT INFORMATION
  Report Type: 
  Country: None (occurrence: None)
  Receive Date: 20111028
  Receipt Date: 20110502
  Transmission Date: 20120403
  Serious: No
  Sender: FDA-Public Use
  Company Number: US-GLAXOSMITHKLINE-A0925329A

PATIENT
  Age: 69 Year
  Sex: Male

DRUGS (9)
  1. TRILIPIX [Concomitant]
  2. METOPROLOL TARTRATE [Concomitant]
  3. CRESTOR [Suspect]
  4. SYMBICORT [Suspect]
  5. ADVAIR DISKUS 100/50 [Suspect]
     Indication: ASTHMA
     Dosage: 1PUFF PER DAY
     Route: 055
     Dates: start: 20030101
  6. ZETIA [Concomitant]
  7. SYNTHROID [Concomitant]
  8. NEXIUM [Concomitant]
  9. RAMIPRIL [Concomitant]

REACTIONS (3)
  - MUSCLE SPASMS [None]
  - DYSPHONIA [None]
  - BLOOD CREATINE PHOSPHOKINASE INCREASED [None]
